FAERS Safety Report 7460218-0 (Version None)
Quarter: 2011Q2

REPORT INFORMATION
  Report Type: 
  Country: None (occurrence: None)
  Receive Date: 20110427
  Receipt Date: 20110411
  Transmission Date: 20111010
  Serious: Yes (Other)
  Sender: FDA-Public Use
  Company Number: 201110444

PATIENT
  Sex: Female

DRUGS (1)
  1. LIORESAL [Suspect]
     Indication: MUSCLE SPASTICITY
     Dosage: 216 MCG, DAILY, INTRATHECAL
     Route: 037

REACTIONS (3)
  - IMPLANT SITE SWELLING [None]
  - DEVICE BREAKAGE [None]
  - IMPAIRED HEALING [None]
